FAERS Safety Report 7569259 (Version 5)
Quarter: 2013Q1

REPORT INFORMATION
  Report Type: Spontaneous
  Country: US (occurrence: US)
  Receive Date: 20100901
  Receipt Date: 20130128
  Transmission Date: 20140127
  Serious: Yes (Hospitalization, Other)
  Sender: FDA-Public Use
  Company Number: US-BAYER-201031835NA

PATIENT
  Age: 43 Year
  Sex: Female
  Weight: 84 kg

DRUGS (30)
  1. YAZ [Suspect]
     Indication: CONTRACEPTION
     Dosage: UNK
     Dates: start: 200711, end: 200912
  2. YAZ [Suspect]
     Indication: PREMENSTRUAL SYNDROME
  3. ALPRAZOLAM [Concomitant]
     Dosage: 2 MG, UNK
     Route: 048
  4. AVELOX [Concomitant]
     Dosage: 400 MG, UNK
     Route: 048
  5. CARISOPRODOL [Concomitant]
     Dosage: 350 MG, UNK
     Route: 048
  6. DETROL [Concomitant]
     Dosage: UNK
  7. DIAZEPAM [Concomitant]
     Dosage: 5 MG, UNK
     Route: 048
  8. ENDOCET [Concomitant]
     Dosage: 10 MG, PRN
     Route: 048
  9. ESTRACE VAGINAL [Concomitant]
     Dosage: 0.01 %, UNK
     Route: 067
  10. FENTANYL [Concomitant]
     Dosage: 0.05 MG, UNK
  11. FENTANYL [Concomitant]
     Dosage: 0.1 MG, UNK
  12. FLUCONAZOLE [Concomitant]
     Dosage: 150 MG, UNK
  13. HYDROCODONE W/APAP [Concomitant]
     Dosage: 325 MG, UNK
  14. IBUPROFEN [IBUPROFEN] [Concomitant]
     Dosage: 800 MG, UNK
     Route: 048
  15. KETOROLAC [Concomitant]
     Dosage: 10 MG, UNK
     Route: 048
  16. LYRICA [Concomitant]
     Dosage: 200 MG, BID
     Route: 048
  17. OMEPRAZOLE [Concomitant]
     Dosage: 20 MG, UNK
  18. PREDNISONE [Concomitant]
     Dosage: 10 MG, UNK
     Route: 048
  19. TOPAMAX [Concomitant]
     Dosage: 25 MG, QD
     Route: 048
  20. TOPROL XL [Concomitant]
     Dosage: 25 MG, QD
     Route: 048
  21. XANAX [Concomitant]
     Dosage: 2 MG, UNK
     Route: 048
  22. AMOXICILLIN [Concomitant]
     Indication: PRODUCT USED FOR UNKNOWN INDICATION
  23. Z-PAK [Concomitant]
     Indication: PRODUCT USED FOR UNKNOWN INDICATION
  24. CLINDAMYCIN [Concomitant]
     Indication: PRODUCT USED FOR UNKNOWN INDICATION
  25. CIPROFLOXACIN [Concomitant]
     Indication: PRODUCT USED FOR UNKNOWN INDICATION
  26. OXYCODONE/APAP [Concomitant]
     Indication: PRODUCT USED FOR UNKNOWN INDICATION
  27. VERSED [Concomitant]
     Indication: PRODUCT USED FOR UNKNOWN INDICATION
  28. DILAUDID [Concomitant]
     Indication: PRODUCT USED FOR UNKNOWN INDICATION
  29. ZOFRAN [Concomitant]
     Indication: PRODUCT USED FOR UNKNOWN INDICATION
  30. PROAIR HFA [Concomitant]
     Indication: MULTIPLE ALLERGIES
     Dosage: UNK
     Dates: start: 20091207, end: 20091216

REACTIONS (7)
  - Deep vein thrombosis [None]
  - Deep vein thrombosis [None]
  - Deep vein thrombosis [None]
  - Pulmonary embolism [None]
  - Cholecystectomy [None]
  - Anxiety [None]
  - Depression [None]
